FAERS Safety Report 8283074-X (Version None)
Quarter: 2012Q2

REPORT INFORMATION
  Report Type: 
  Country: None (occurrence: None)
  Receive Date: 20120413
  Receipt Date: 20120412
  Transmission Date: 20120825
  Serious: No
  Sender: FDA-Public Use
  Company Number: US-PFIZER INC-2012091863

PATIENT
  Sex: Female
  Weight: 84.4 kg

DRUGS (23)
  1. CHANTIX [Suspect]
     Dosage: 1 MG, 2X/DAY
     Route: 048
     Dates: start: 20120101
  2. LAMOTRIGINE [Concomitant]
     Indication: BIPOLAR DISORDER
     Dosage: 25 MG, 2X/DAY
  3. LEVOTHYROXINE [Concomitant]
     Indication: THYROID DISORDER
     Dosage: 50 MG, UNK
  4. SIMVASTATIN [Concomitant]
     Indication: BLOOD CHOLESTEROL INCREASED
     Dosage: 20 MG, 1X/DAY
  5. MORPHINE [Concomitant]
     Indication: INTERVERTEBRAL DISC DEGENERATION
     Dosage: 50 MG, 1X/DAY
  6. XANAX [Concomitant]
     Dosage: 1 MG, 2X/DAY
  7. FLUTICASONE [Concomitant]
     Dosage: UNK, 1X/DAY
  8. ACETYLSALICYLIC ACID [Concomitant]
     Dosage: 81 MG, UNK
  9. CHANTIX [Suspect]
     Indication: SMOKING CESSATION THERAPY
     Dosage: 0.5 MG, 1X/DAY
     Route: 048
     Dates: start: 20120301, end: 20120101
  10. HYDROCHLOROTHIAZIDE [Concomitant]
     Indication: HYPERTENSION
     Dosage: UNK
  11. COLACE [Concomitant]
     Dosage: UNK
  12. CITALOPRAM [Concomitant]
     Dosage: 20 MG, 1X/DAY
  13. BONIVA [Concomitant]
     Indication: OSTEOPOROSIS
     Dosage: UNK
  14. MELOXICAM [Concomitant]
     Indication: ARTHRITIS
     Dosage: 7.5 MG, UNK
  15. VITAMIN D [Concomitant]
     Dosage: UNK, 1X/DAY
  16. PROMETHAZINE [Concomitant]
     Dosage: UNK
  17. CENTRUM [Concomitant]
     Dosage: UNK
  18. CETIRIZINE [Concomitant]
     Indication: HYPERSENSITIVITY
     Dosage: 10 MG, UNK
  19. CYMBALTA [Concomitant]
     Indication: DEPRESSION
     Dosage: 20 MG, 2X/DAY
  20. PROMETHAZINE [Concomitant]
     Indication: NAUSEA
     Dosage: 25 MG, UNK
  21. ABILIFY [Concomitant]
     Dosage: 5 MG, 1X/DAY
  22. FISH OIL [Concomitant]
     Dosage: 1000 MG, UNK
  23. ALBUTEROL [Concomitant]
     Dosage: UNK

REACTIONS (1)
  - TOBACCO USER [None]
